FAERS Safety Report 21177737 (Version 1)
Quarter: 2022Q3

REPORT INFORMATION
  Report Type: Spontaneous
  Country: US (occurrence: US)
  Receive Date: 20220805
  Receipt Date: 20220805
  Transmission Date: 20221026
  Serious: No
  Sender: FDA-Public Use
  Company Number: US-Albireo AB-2022ALB000103

PATIENT
  Age: 5 Year
  Sex: Male
  Weight: 18.160 kg

DRUGS (2)
  1. BYLVAY [Suspect]
     Active Substance: ODEVIXIBAT
     Indication: Progressive familial intrahepatic cholestasis
     Route: 048
  2. BYLVAY [Suspect]
     Active Substance: ODEVIXIBAT
     Route: 048

REACTIONS (1)
  - Diarrhoea [Unknown]
